FAERS Safety Report 7239544-6 (Version None)
Quarter: 2011Q1

REPORT INFORMATION
  Report Type: 
  Country: None (occurrence: None)
  Receive Date: 20110121
  Receipt Date: 20100216
  Transmission Date: 20110831
  Serious: No
  Sender: FDA-Public Use
  Company Number: US-PFIZER INC-2009312088

PATIENT
  Age: 74 Year
  Sex: Male
  Weight: 86.2 kg

DRUGS (3)
  1. NIFEDIPINE [Suspect]
     Dosage: 120 MG, 2X/DAY
  2. NIFEDIPINE [Suspect]
     Indication: BLOOD PRESSURE INCREASED
     Dosage: 30 MG, 4X/DAY
  3. NIFEDIPINE [Suspect]
     Dosage: 60 MG, 3X/DAY

REACTIONS (1)
  - DRUG INEFFECTIVE [None]
